FAERS Safety Report 11569168 (Version 6)
Quarter: 2022Q1

REPORT INFORMATION
  Report Type: Spontaneous
  Country: US (occurrence: US)
  Receive Date: 20150929
  Receipt Date: 20220303
  Transmission Date: 20220423
  Serious: Yes (Hospitalization, Other)
  Sender: FDA-Public Use
  Company Number: US-MYLANLABS-2015M1010056

PATIENT
  Age: 12 Year
  Sex: Female

DRUGS (5)
  1. CYSTAGON [Suspect]
     Active Substance: CYSTEAMINE BITARTRATE
     Indication: Congenital cystic kidney disease
     Dosage: 300 MG, QID
     Route: 048
     Dates: start: 20131211
  2. CYSTAGON [Suspect]
     Active Substance: CYSTEAMINE BITARTRATE
     Dosage: 450 MG (3 CAPSULES) AND 600 MG (4 CAPSULES),Q6H
     Route: 048
     Dates: start: 20131012
  3. CYSTAGON [Suspect]
     Active Substance: CYSTEAMINE BITARTRATE
     Dosage: 150 MILLIGRAM, QID
  4. CYSTAGON [Suspect]
     Active Substance: CYSTEAMINE BITARTRATE
     Dosage: 150 MILLIGRAM, QID
     Dates: start: 20210511
  5. CYSTAGON [Suspect]
     Active Substance: CYSTEAMINE BITARTRATE
     Dosage: 300 MILLIGRAM, Q6H
     Route: 048
     Dates: start: 201312

REACTIONS (7)
  - Gastric ulcer [Unknown]
  - Haemorrhage [Unknown]
  - Weight abnormal [Unknown]
  - Chills [Not Recovered/Not Resolved]
  - Pyrexia [Not Recovered/Not Resolved]
  - Nausea [Unknown]
  - Visual impairment [Unknown]

NARRATIVE: CASE EVENT DATE: 20150320
